FAERS Safety Report 25890443 (Version 8)
Quarter: 2025Q4

REPORT INFORMATION
  Report Type: Spontaneous
  Country: EU (occurrence: EU)
  Receive Date: 20251007
  Receipt Date: 20251201
  Transmission Date: 20260117
  Serious: Yes (Disabling, Other)
  Sender: PFIZER
  Company Number: EU-PFIZER INC-202500070947

PATIENT
  Age: 73 Year
  Sex: Male
  Weight: 65 kg

DRUGS (5)
  1. CAVERJECT [Suspect]
     Active Substance: ALPROSTADIL
     Dosage: DOSES OF 0.75 TO 1; 3 OR 4 COMPLETE DOSES, 3 OR 4 AT 75% AND 3 OR 4 AT 50%
     Route: 017
  2. CAVERJECT [Suspect]
     Active Substance: ALPROSTADIL
     Dosage: 10 UG, CYCLIC (1 EVERY 10 DAYS)
     Route: 017
     Dates: start: 20240301
  3. CAVERJECT [Suspect]
     Active Substance: ALPROSTADIL
     Dosage: 20 UG
     Route: 017
     Dates: start: 20240611
  4. CAVERJECT [Suspect]
     Active Substance: ALPROSTADIL
     Dosage: 10 UG
     Route: 017
     Dates: start: 20250616, end: 20251018
  5. CAVERJECT [Suspect]
     Active Substance: ALPROSTADIL
     Dosage: 20 UG, GIVEN 3 INJECTIONS
     Route: 017
     Dates: end: 20251106

REACTIONS (3)
  - Peyronie^s disease [Not Recovered/Not Resolved]
  - Erection increased [Unknown]
  - Penile pain [Unknown]

NARRATIVE: CASE EVENT DATE: 20250616
